FAERS Safety Report 7245229-2 (Version None)
Quarter: 2011Q1

REPORT INFORMATION
  Report Type: 
  Country: None (occurrence: None)
  Receive Date: 20110126
  Receipt Date: 20110121
  Transmission Date: 20110831
  Serious: Yes (Hospitalization)
  Sender: FDA-Public Use
  Company Number: AT-CELGENEUS-009-C5013-07110680

PATIENT
  Sex: Male
  Weight: 69.7 kg

DRUGS (6)
  1. CC-5013 [Suspect]
     Route: 048
     Dates: start: 20071220, end: 20080109
  2. PREDNISONE [Suspect]
     Indication: MULTIPLE MYELOMA
     Route: 048
     Dates: start: 20070919, end: 20071113
  3. CC-5013 [Suspect]
     Indication: MULTIPLE MYELOMA
     Route: 048
     Dates: start: 20070919, end: 20071113
  4. MELPHALAN [Suspect]
     Indication: MULTIPLE MYELOMA
     Route: 048
     Dates: start: 20070919, end: 20071113
  5. MELPHALAN [Suspect]
     Route: 048
     Dates: start: 20071220, end: 20071223
  6. PREDNISONE [Suspect]
     Route: 048
     Dates: start: 20071219

REACTIONS (2)
  - GENERAL PHYSICAL HEALTH DETERIORATION [None]
  - FEBRILE NEUTROPENIA [None]
